FAERS Safety Report 8398091-9 (Version None)
Quarter: 2012Q2

REPORT INFORMATION
  Report Type: 
  Country: None (occurrence: None)
  Receive Date: 20120531
  Receipt Date: 20120521
  Transmission Date: 20120825
  Serious: Yes (Hospitalization, Other)
  Sender: FDA-Public Use
  Company Number: US-ABBOTT-12P-163-0937693-00

PATIENT
  Sex: Male
  Weight: 81.72 kg

DRUGS (3)
  1. HUMIRA [Suspect]
     Indication: RHEUMATOID ARTHRITIS
     Dates: start: 20050101, end: 20060101
  2. PLAVIX [Suspect]
     Indication: CEREBROVASCULAR ACCIDENT
     Dates: start: 20060401, end: 20060501
  3. HUMIRA [Suspect]
     Dates: start: 20120515

REACTIONS (12)
  - HEADACHE [None]
  - MOTOR DYSFUNCTION [None]
  - DRY EYE [None]
  - WEIGHT DECREASED [None]
  - FALL [None]
  - TOOTH DISORDER [None]
  - EYE DISORDER [None]
  - CEREBROVASCULAR ACCIDENT [None]
  - PARALYSIS [None]
  - TOOTH INFECTION [None]
  - CAROTID ARTERY OCCLUSION [None]
  - GASTROINTESTINAL HAEMORRHAGE [None]
